FAERS Safety Report 13612085 (Version 1)
Quarter: 2017Q2

REPORT INFORMATION
  Report Type: Spontaneous
  Country: US (occurrence: US)
  Receive Date: 20170605
  Receipt Date: 20170605
  Transmission Date: 20170830
  Serious: Yes (Other)
  Sender: FDA-Public Use
  Company Number: None

PATIENT
  Age: 23 Year
  Sex: Female
  Weight: 48.08 kg

DRUGS (1)
  1. SUBOXONE [Suspect]
     Active Substance: BUPRENORPHINE HYDROCHLORIDE\NALOXONE HYDROCHLORIDE

REACTIONS (6)
  - Eye pain [None]
  - Photophobia [None]
  - Migraine [None]
  - Nausea [None]
  - Product substitution issue [None]
  - Vomiting [None]

NARRATIVE: CASE EVENT DATE: 20170501
